FAERS Safety Report 20899546 (Version 1)
Quarter: 2022Q2

REPORT INFORMATION
  Report Type: Spontaneous
  Country: GB (occurrence: GB)
  Receive Date: 20220601
  Receipt Date: 20220601
  Transmission Date: 20220721
  Serious: Yes (Other)
  Sender: FDA-Public Use
  Company Number: GB-MHRA-TPP18592690C6870043YC1652791243663

PATIENT
  Age: 55 Year
  Sex: Female
  Weight: 126 kg

DRUGS (8)
  1. DULOXETINE [Suspect]
     Active Substance: DULOXETINE
     Indication: Ill-defined disorder
     Dosage: UNK
     Route: 065
     Dates: start: 20220516
  2. ATORVASTATIN [Concomitant]
     Active Substance: ATORVASTATIN
     Indication: Ill-defined disorder
     Dosage: UNK (ONE TO BE TAKEN AT NIGHT)
     Route: 065
     Dates: start: 20210924
  3. COCODAMOL [Concomitant]
     Active Substance: ACETAMINOPHEN\CODEINE PHOSPHATE
     Indication: Ill-defined disorder
     Dosage: UNK (TAKE TWO 4 TIMES/DAY IF NEEDED FOR PAIN. MAY CAUSE CONSTIPATION)
     Route: 065
     Dates: start: 20220503, end: 20220517
  4. DULOXETINE [Concomitant]
     Active Substance: DULOXETINE
     Indication: Ill-defined disorder
     Dosage: UNK (TAKE ONE TABLET DAILY)
     Route: 065
     Dates: start: 20220511
  5. LANSOPRAZOLE [Concomitant]
     Active Substance: LANSOPRAZOLE
     Indication: Ill-defined disorder
     Dosage: UNK (ONE TO  BE TAKEN EACH MORNING AND ONE IN THE AF...)
     Route: 065
     Dates: start: 20210924
  6. LEVOTHYROXINE [Concomitant]
     Active Substance: LEVOTHYROXINE
     Indication: Ill-defined disorder
     Dosage: UNK UNK, ONCE A DAY
     Route: 065
     Dates: start: 20210924
  7. PROCHLORPERAZINE [Concomitant]
     Active Substance: PROCHLORPERAZINE
     Indication: Ill-defined disorder
     Dosage: UNK (1-2 TDS IF NEEDED)
     Route: 065
     Dates: start: 20220228, end: 20220328
  8. RAMIPRIL [Concomitant]
     Active Substance: RAMIPRIL
     Indication: Ill-defined disorder
     Dosage: UNK UNK, ONCE A DAY
     Route: 065
     Dates: start: 20220414

REACTIONS (4)
  - Loss of control of legs [Recovered/Resolved]
  - Urticaria [Recovered/Resolved]
  - Oral pruritus [Recovered/Resolved]
  - Confusional state [Recovered/Resolved]

NARRATIVE: CASE EVENT DATE: 20220516
